FAERS Safety Report 15385992 (Version 2)
Quarter: 2018Q3

REPORT INFORMATION
  Report Type: Spontaneous
  Country: LT (occurrence: LT)
  Receive Date: 20180914
  Receipt Date: 20180920
  Transmission Date: 20181010
  Serious: Yes (Life-Threatening)
  Sender: FDA-Public Use
  Company Number: LT-ELI_LILLY_AND_COMPANY-LT201809005773

PATIENT
  Age: 44 Year
  Sex: Male

DRUGS (5)
  1. TAVEGYL [Concomitant]
     Active Substance: CLEMASTINE FUMARATE
     Indication: PREMEDICATION
  2. DEXAMETHASONE. [Concomitant]
     Active Substance: DEXAMETHASONE
     Indication: PREMEDICATION
  3. ERBITUX [Suspect]
     Active Substance: CETUXIMAB
     Indication: TONGUE NEOPLASM MALIGNANT STAGE UNSPECIFIED
     Dosage: 684 MG, UNKNOWN
     Route: 042
     Dates: start: 20180828, end: 20180828
  4. ADRENALIN                          /00003901/ [Concomitant]
     Active Substance: EPINEPHRINE
     Indication: PREMEDICATION
  5. EUPHYLLIN                          /00003701/ [Concomitant]
     Indication: PREMEDICATION

REACTIONS (8)
  - Urinary incontinence [Recovering/Resolving]
  - Oxygen saturation decreased [Unknown]
  - Cyanosis [Recovered/Resolved]
  - Bronchospasm [Recovering/Resolving]
  - Visual impairment [Recovering/Resolving]
  - Blood pressure decreased [Recovering/Resolving]
  - Dyspnoea [Recovering/Resolving]
  - Chest discomfort [Recovering/Resolving]

NARRATIVE: CASE EVENT DATE: 20180828
